FAERS Safety Report 23719593 (Version 1)
Quarter: 2024Q2

REPORT INFORMATION
  Report Type: Spontaneous
  Country: IN (occurrence: IN)
  Receive Date: 20240408
  Receipt Date: 20240408
  Transmission Date: 20240715
  Serious: Yes (Life-Threatening, Other)
  Sender: FDA-Public Use
  Company Number: IN-PFIZER INC-PV202400042328

PATIENT
  Age: 11 Year
  Sex: Male

DRUGS (5)
  1. DOXORUBICIN HYDROCHLORIDE [Suspect]
     Active Substance: DOXORUBICIN HYDROCHLORIDE
     Indication: Ewing^s sarcoma
     Dosage: UNK UNK, CYCLIC
  2. VINCRISTINE [Suspect]
     Active Substance: VINCRISTINE
     Indication: Ewing^s sarcoma
     Dosage: UNK UNK, CYCLIC
  3. CYCLOPHOSPHAMIDE [Suspect]
     Active Substance: CYCLOPHOSPHAMIDE
     Indication: Ewing^s sarcoma
     Dosage: UNK UNK, CYCLIC
  4. CLOTRIMAZOLE [Concomitant]
     Active Substance: CLOTRIMAZOLE
     Indication: Candida infection
     Dosage: 1%W/V, 3-4 TIME PR DAY FOR 14 DAY
     Route: 061
  5. SUCRALFATE [Concomitant]
     Active Substance: SUCRALFATE
     Indication: Candida infection
     Dosage: SUSPENSION, 1G/10ML, 1 MONTH

REACTIONS (8)
  - Mucosal inflammation [Unknown]
  - Neutropenia [Unknown]
  - Oesophageal candidiasis [Recovered/Resolved]
  - Dry mouth [Recovering/Resolving]
  - Oral candidiasis [Recovering/Resolving]
  - Alopecia [Unknown]
  - Madarosis [Unknown]
  - Skin discolouration [Unknown]
